FAERS Safety Report 11151588 (Version 1)
Quarter: 2015Q2

REPORT INFORMATION
  Report Type: Spontaneous
  Country: US (occurrence: None)
  Receive Date: 20150529
  Receipt Date: 20150529
  Transmission Date: 20150821
  Serious: Yes (Other)
  Sender: FDA-Public Use
  Company Number: None

PATIENT
  Age: 61 Year
  Sex: Female
  Weight: 86.18 kg

DRUGS (19)
  1. ALBUTEROL INHALER [Concomitant]
     Active Substance: ALBUTEROL
  2. LITHIUM. [Concomitant]
     Active Substance: LITHIUM
  3. VITAMIN D3 [Concomitant]
     Active Substance: CHOLECALCIFEROL
  4. PROPOFOL. [Suspect]
     Active Substance: PROPOFOL
     Indication: THERAPEUTIC PROCEDURE
     Route: 042
     Dates: start: 20150527, end: 20150527
  5. LORAZEPAM. [Concomitant]
     Active Substance: LORAZEPAM
  6. METOPROLOL [Concomitant]
     Active Substance: METOPROLOL
  7. TRAZODONE [Concomitant]
     Active Substance: TRAZODONE HYDROCHLORIDE
  8. ACYCLOVIR. [Concomitant]
     Active Substance: ACYCLOVIR
  9. QVAR INHALER [Concomitant]
  10. NYSTATIN SWISH + SPIT [Concomitant]
  11. FUROSEMIDE. [Concomitant]
     Active Substance: FUROSEMIDE
  12. SUMATRIPTAN. [Concomitant]
     Active Substance: SUMATRIPTAN
  13. HYDROXYZINE PAMOATE. [Concomitant]
     Active Substance: HYDROXYZINE PAMOATE
  14. VITAMIN B COMPLEX [Concomitant]
     Active Substance: CYANOCOBALAMIN\DEXPANTHENOL\NIACINAMIDE\PYRIDOXINE HYDROCHLORIDE\RIBOFLAVIN 5^-PHOSPHATE SODIUM\THIAMINE HYDROCHLORIDE\VITAMIN B COMPLEX
  15. VITAMIN C [Concomitant]
     Active Substance: ASCORBIC ACID
  16. FLUCONAZOLE. [Concomitant]
     Active Substance: FLUCONAZOLE
  17. SEPTRA DS [Concomitant]
     Active Substance: SULFAMETHOXAZOLE\TRIMETHOPRIM
  18. PROPOFOL. [Suspect]
     Active Substance: PROPOFOL
     Indication: SEDATION
     Route: 042
     Dates: start: 20150527, end: 20150527
  19. ESTRADIOL. [Concomitant]
     Active Substance: ESTRADIOL

REACTIONS (4)
  - Rhinorrhoea [None]
  - Nasal discomfort [None]
  - Drug hypersensitivity [None]
  - Sneezing [None]

NARRATIVE: CASE EVENT DATE: 20150527
